FAERS Safety Report 5335667-7 (Version None)
Quarter: 2007Q2

REPORT INFORMATION
  Report Type: 
  Country: None (occurrence: None)
  Receive Date: 20070322
  Receipt Date: 20070215
  Transmission Date: 20071010
  Serious: No
  Sender: FDA-Public Use
  Company Number: 2007US000393

PATIENT
  Age: 53 Year
  Sex: Male

DRUGS (2)
  1. VESICARE [Suspect]
     Indication: URINARY INCONTINENCE
     Dosage: ORAL
     Route: 048
  2. REBIF [Concomitant]

REACTIONS (1)
  - STOMACH DISCOMFORT [None]
